FAERS Safety Report 8393524-6 (Version None)
Quarter: 2012Q2

REPORT INFORMATION
  Report Type: 
  Country: None (occurrence: None)
  Receive Date: 20120529
  Receipt Date: 20110516
  Transmission Date: 20120825
  Serious: Yes (Congenital Anomaly)
  Sender: FDA-Public Use
  Company Number: DE-MYLANLABS-2012S1010073

PATIENT
  Age: 0 Year
  Sex: Male
  Weight: 2.57 kg

DRUGS (11)
  1. PROGESTERONE [Concomitant]
     Indication: PROPHYLAXIS OF ABORTION
     Route: 064
     Dates: start: 20110208
  2. PREDNISOLONE [Concomitant]
     Route: 064
     Dates: start: 20110827, end: 20110830
  3. ENOXAPARIN SODIUM [Concomitant]
     Route: 064
     Dates: end: 20111103
  4. CETIRIZINE HCL [Concomitant]
     Route: 064
     Dates: start: 20110825
  5. FRAGMIN [Concomitant]
     Route: 064
     Dates: start: 20110208, end: 20110825
  6. METOPROLOL TARTRATE [Suspect]
     Dosage: 47.5 [MG/D ]/ + PRECON, SINCE SEVERAL YEARS 2X23.75 MG/D
     Route: 064
     Dates: start: 20110208, end: 20110701
  7. BISOPROLOL FUMARATE [Suspect]
     Dosage: 2.5 [MG/D ]/ UP TO 2.5 MG/D
     Route: 064
     Dates: start: 20110702, end: 20110824
  8. MONUROL [Concomitant]
     Route: 064
  9. FEMIBION [Concomitant]
     Indication: PROPHYLAXIS OF NEURAL TUBE DEFECT
     Route: 064
     Dates: start: 20110208, end: 20111103
  10. CEFUROXIME [Concomitant]
     Route: 064
  11. ARIXTRA [Concomitant]
     Route: 064

REACTIONS (4)
  - SMALL FOR DATES BABY [None]
  - HYDROCELE [None]
  - MATERNAL EXPOSURE DURING PREGNANCY [None]
  - HYPOSPADIAS [None]
